FAERS Safety Report 16033983 (Version 1)
Quarter: 2019Q1

REPORT INFORMATION
  Report Type: Spontaneous
  Country: US (occurrence: US)
  Receive Date: 20190305
  Receipt Date: 20190305
  Transmission Date: 20190418
  Serious: Yes (Other)
  Sender: FDA-Public Use
  Company Number: PHHY2019US045796

PATIENT
  Age: 56 Year
  Sex: Female

DRUGS (5)
  1. CICLOSPORIN [Concomitant]
     Active Substance: CYCLOSPORINE
     Indication: SYSTEMIC LUPUS ERYTHEMATOSUS
     Dosage: 1 MG/KG, UNK (75 MG)
     Route: 065
  2. ZOLEDRONATE [Suspect]
     Active Substance: ZOLEDRONIC ACID
     Indication: OSTEOPOROSIS
     Dosage: 1 DF, UNK
     Route: 065
  3. CICLOSPORIN [Concomitant]
     Active Substance: CYCLOSPORINE
     Indication: IMMUNOSUPPRESSANT DRUG THERAPY
  4. BELIMUMAB [Concomitant]
     Active Substance: BELIMUMAB
     Indication: SYSTEMIC LUPUS ERYTHEMATOSUS
     Dosage: 120 MG/1.5 ML, SYSTEMIC
     Route: 065
  5. BELIMUMAB [Concomitant]
     Active Substance: BELIMUMAB
     Indication: IMMUNOSUPPRESSANT DRUG THERAPY

REACTIONS (2)
  - Parophthalmia [Recovered/Resolved]
  - Vitreous detachment [Recovered/Resolved]
